FAERS Safety Report 5759400-X (Version None)
Quarter: 2008Q2

REPORT INFORMATION
  Report Type: 
  Country: None (occurrence: None)
  Receive Date: 20080604
  Receipt Date: 20080604
  Transmission Date: 20081010
  Serious: No
  Sender: FDA-Public Use
  Company Number: None

PATIENT
  Sex: Male
  Weight: 81.6475 kg

DRUGS (1)
  1. DIGITEK0.125MCG/ACTAVIS TOTOWA LLC [Suspect]
     Indication: CARDIAC FAILURE
     Dosage: 125 MCG 1 TABLET DAILY
     Dates: start: 20080301, end: 20080501

REACTIONS (1)
  - PHARMACEUTICAL PRODUCT COMPLAINT [None]
